FAERS Safety Report 12969317 (Version 1)
Quarter: 2016Q4

REPORT INFORMATION
  Report Type: Spontaneous
  Country: US (occurrence: US)
  Receive Date: 20161123
  Receipt Date: 20161123
  Transmission Date: 20170207
  Serious: Yes (Death)
  Sender: FDA-Public Use
  Company Number: US-TEVA-713613USA

PATIENT
  Age: 37 Year
  Sex: Male

DRUGS (3)
  1. ETOPOSIDE. [Suspect]
     Active Substance: ETOPOSIDE
     Indication: GERM CELL CANCER
     Dosage: 4 CYCLES
     Route: 065
  2. BLEOMYCIN [Suspect]
     Active Substance: BLEOMYCIN SULFATE
     Indication: GERM CELL CANCER
     Dosage: 4 CYCLES
     Route: 065
  3. CISPLATIN. [Suspect]
     Active Substance: CISPLATIN
     Indication: GERM CELL CANCER
     Dosage: 4 CYCLES
     Route: 065

REACTIONS (2)
  - Myelodysplastic syndrome [Fatal]
  - Bone marrow failure [Fatal]
